FAERS Safety Report 5277980-8 (Version None)
Quarter: 2007Q1

REPORT INFORMATION
  Report Type: 
  Country: None (occurrence: None)
  Receive Date: 20070321
  Receipt Date: 20070306
  Transmission Date: 20070707
  Serious: Yes (Other)
  Sender: FDA-Public Use
  Company Number: 100#08#2007-00770

PATIENT
  Age: 60 Year
  Sex: Female

DRUGS (6)
  1. PACLITAXEL (PACLITAXEL) (PACLITAXEL) [Suspect]
     Indication: ENDOMETRIAL CANCER
     Dosage: 175 MG/M2 UNKNOWN
  2. PACLITAXEL (PACLITAXEL) (PACLITAXEL) [Suspect]
     Indication: OVARIAN CANCER
     Dosage: 175 MG/M2 UNKNOWN
  3. CARBOPLATIN [Suspect]
     Indication: ENDOMETRIAL CANCER
     Dosage: 550MG (AUC 5 MG/ML/MIN) UNKNOWN
  4. CARBOPLATIN [Suspect]
     Indication: OVARIAN CANCER
     Dosage: 550MG (AUC 5 MG/ML/MIN) UNKNOWN
  5. HEPARIN [Concomitant]
  6. WARFARIN (WARFARIN) (WARFARIN) [Concomitant]

REACTIONS (5)
  - ARTERIAL THROMBOSIS [None]
  - HEPATIC FUNCTION ABNORMAL [None]
  - METASTASES TO LIVER [None]
  - THROMBOCYTOPENIA [None]
  - VENOUS OCCLUSION [None]
